FAERS Safety Report 20258485 (Version 1)
Quarter: 2021Q4

REPORT INFORMATION
  Report Type: Spontaneous
  Country: US (occurrence: None)
  Receive Date: 20211229
  Receipt Date: 20211229
  Transmission Date: 20220303
  Serious: Yes (Hospitalization)
  Sender: FDA-Public Use
  Company Number: None

PATIENT
  Sex: Female

DRUGS (1)
  1. HUMIRA [Suspect]
     Active Substance: ADALIMUMAB
     Indication: Hidradenitis
     Dosage: INJECT 1 PEN UNDER THE SKIN (SUBCUTANEOUS  INJECTION) ONCE EVERY WEEK?
     Route: 058
     Dates: start: 20210701

REACTIONS (1)
  - Therapy interrupted [None]
